FAERS Safety Report 4359326-2 (Version None)
Quarter: 2004Q2

REPORT INFORMATION
  Report Type: 
  Country: None (occurrence: None)
  Receive Date: 20040517
  Receipt Date: 20040517
  Transmission Date: 20050107
  Serious: Yes (Hospitalization)
  Sender: FDA-Public Use
  Company Number: None

PATIENT
  Age: 55 Year
  Sex: Female
  Weight: 50 kg

DRUGS (1)
  1. VFEND [Suspect]
     Indication: ASPERGILLOSIS
     Dosage: 200 MG IV Q 12 HRS
     Route: 042
     Dates: start: 20040406, end: 20040408

REACTIONS (4)
  - DYSPNOEA [None]
  - GLOSSODYNIA [None]
  - PRURITUS [None]
  - SELF-MEDICATION [None]
